FAERS Safety Report 5294439-2 (Version None)
Quarter: 2007Q2

REPORT INFORMATION
  Report Type: 
  Country: None (occurrence: None)
  Receive Date: 20070409
  Receipt Date: 20070409
  Transmission Date: 20071010
  Serious: Yes (Death)
  Sender: FDA-Public Use
  Company Number: None

PATIENT
  Age: 56 Year
  Sex: Female
  Weight: 68.4932 kg

DRUGS (2)
  1. COLCHICINE 0.5 MG/ML APOTHECURE [Suspect]
     Indication: BACK PAIN
     Dosage: 4ML 1-3 TIMES PER WEEK IV
     Route: 042
     Dates: start: 20070213, end: 20070330
  2. COLCHICINE 0.5 MG/ML APOTHECURE [Suspect]

REACTIONS (5)
  - DIARRHOEA [None]
  - MULTI-ORGAN FAILURE [None]
  - NAUSEA [None]
  - PHARMACEUTICAL PRODUCT COMPLAINT [None]
  - VOMITING [None]
